FAERS Safety Report 18292895 (Version 1)
Quarter: 2020Q3

REPORT INFORMATION
  Report Type: Spontaneous
  Country: US (occurrence: US)
  Receive Date: 20200921
  Receipt Date: 20200921
  Transmission Date: 20201103
  Serious: Yes (Death, Hospitalization)
  Sender: FDA-Public Use
  Company Number: None

PATIENT
  Age: 56 Year
  Sex: Male

DRUGS (1)
  1. AXICABTAGENE CILOLEUCEL [Suspect]
     Active Substance: AXICABTAGENE CILOLEUCEL
     Indication: DIFFUSE LARGE B-CELL LYMPHOMA
     Dosage: ?          OTHER FREQUENCY:ONCE;?
     Route: 042
     Dates: start: 20200717, end: 20200717

REACTIONS (16)
  - Neurotoxicity [None]
  - Supraventricular tachycardia [None]
  - Sinus arrest [None]
  - Bradycardia [None]
  - Arrhythmia [None]
  - Nodal rhythm [None]
  - Pneumonia [None]
  - Failure to thrive [None]
  - Oxygen saturation decreased [None]
  - Respiratory failure [None]
  - Aspiration [None]
  - Pleural effusion [None]
  - Intracardiac mass [None]
  - Pericardial effusion [None]
  - Ventricular tachycardia [None]
  - Unresponsive to stimuli [None]

NARRATIVE: CASE EVENT DATE: 20200814
